FAERS Safety Report 5129217-8 (Version None)
Quarter: 2006Q4

REPORT INFORMATION
  Report Type: 
  Country: None (occurrence: None)
  Receive Date: 20061006
  Receipt Date: 20060929
  Transmission Date: 20070319
  Serious: Yes (Life-Threatening, Hospitalization)
  Sender: FDA-Public Use
  Company Number: THYM-11081

PATIENT
  Sex: Female

DRUGS (3)
  1. THYMOGLOBULIN [Suspect]
     Indication: KIDNEY TRANSPLANT REJECTION
  2. THYMOGLOBULIN [Suspect]
     Indication: KIDNEY TRANSPLANT REJECTION
  3. THYMOGLOBULIN [Suspect]
     Indication: KIDNEY TRANSPLANT REJECTION

REACTIONS (5)
  - CARDIAC ARREST [None]
  - CHILLS [None]
  - CIRCULATORY COLLAPSE [None]
  - INFUSION RELATED REACTION [None]
  - PYREXIA [None]
